FAERS Safety Report 19133524 (Version 1)
Quarter: 2021Q2

REPORT INFORMATION
  Report Type: Spontaneous
  Country: US (occurrence: US)
  Receive Date: 20210414
  Receipt Date: 20210414
  Transmission Date: 20210717
  Serious: Yes (Other)
  Sender: FDA-Public Use
  Company Number: US-GLAXOSMITHKLINE-US2021GSK083576

PATIENT
  Sex: Female

DRUGS (8)
  1. ZANTAC [Suspect]
     Active Substance: RANITIDINE HYDROCHLORIDE
     Indication: HYPERCHLORHYDRIA
     Dosage: 300 MG,3?5X WEEKLY
     Route: 065
     Dates: start: 200401, end: 201908
  2. ZANTAC [Suspect]
     Active Substance: RANITIDINE HYDROCHLORIDE
     Indication: HYPERCHLORHYDRIA
     Dosage: 300 MG,3?5X WEEKLY
     Route: 065
     Dates: start: 200401, end: 201908
  3. RANITIDINE. [Suspect]
     Active Substance: RANITIDINE
     Indication: HYPERCHLORHYDRIA
     Dosage: 300 MG,3/4X^S WEEKLY
     Route: 065
     Dates: start: 200501, end: 201908
  4. RANITIDINE HYDROCHLORIDE. [Suspect]
     Active Substance: RANITIDINE HYDROCHLORIDE
     Indication: HYPERCHLORHYDRIA
     Dosage: 300 MG,3/4X^S WEEKLY
     Route: 065
     Dates: start: 200501, end: 201908
  5. RANITIDINE CAPSULE [Suspect]
     Active Substance: RANITIDINE
     Indication: HYPERCHLORHYDRIA
     Dosage: 300 MG,3/4X^S WEEKLY
     Route: 065
     Dates: start: 200501, end: 201908
  6. ZANTAC [Suspect]
     Active Substance: RANITIDINE HYDROCHLORIDE
     Indication: HYPERCHLORHYDRIA
     Dosage: 300 MG,3?5X WEEKLY
     Route: 065
     Dates: start: 200401, end: 201908
  7. RANITIDINE CAPSULE [Suspect]
     Active Substance: RANITIDINE
     Indication: HYPERCHLORHYDRIA
     Dosage: 300 MG,3?5X WEEKLY
     Route: 065
     Dates: start: 200401, end: 201908
  8. RANITIDINE HYDROCHLORIDE. [Suspect]
     Active Substance: RANITIDINE HYDROCHLORIDE
     Indication: HYPERCHLORHYDRIA
     Dosage: 300 MG,3/4X^S WEEKLY
     Route: 065
     Dates: start: 200501, end: 201908

REACTIONS (1)
  - Oropharyngeal cancer [Unknown]
